FAERS Safety Report 9701993 (Version 1)
Quarter: 2013Q4

REPORT INFORMATION
  Report Type: Report from Study
  Country: US (occurrence: US)
  Receive Date: 20131121
  Receipt Date: 20131121
  Transmission Date: 20140711
  Serious: Yes (Death, Hospitalization)
  Sender: FDA-Public Use
  Company Number: US-DRAFT-US-2013-12162

PATIENT
  Age: 61 Year
  Sex: Male
  Weight: 63.5 kg

DRUGS (4)
  1. BUSULFEX [Suspect]
     Indication: CHRONIC MYELOID LEUKAEMIA
     Dosage: 333 MG MILLIGRAM(S), DAILY DOSE
     Route: 041
     Dates: start: 20050520, end: 20050523
  2. FLUDARABINE [Suspect]
     Indication: CHRONIC MYELOID LEUKAEMIA
     Dosage: 48 MG MILLIGRAM(S), DAILY DOSE
     Route: 041
     Dates: start: 20050519, end: 20050523
  3. ALEMTUZUMAB [Suspect]
     Indication: CHRONIC MYELOID LEUKAEMIA
     Dosage: 20 MG MILLIGRAM(S), DAILY DOSE
     Route: 042
     Dates: start: 20050519, end: 20050523
  4. CLONAZEPAM [Suspect]
     Indication: CONVULSION PROPHYLAXIS
     Dosage: UNK
     Route: 048

REACTIONS (1)
  - Pneumonia viral [Fatal]
